FAERS Safety Report 8119869-2 (Version None)
Quarter: 2012Q1

REPORT INFORMATION
  Report Type: 
  Country: None (occurrence: None)
  Receive Date: 20120207
  Receipt Date: 20120201
  Transmission Date: 20120608
  Serious: Yes (Other)
  Sender: FDA-Public Use
  Company Number: US-PFIZER INC-US-WYE-H12240009

PATIENT
  Sex: Female
  Weight: 108 kg

DRUGS (15)
  1. ENBREL [Suspect]
     Indication: RHEUMATOID ARTHRITIS
     Dosage: 50.0 MG, WEEKLY
     Route: 058
     Dates: start: 20021202
  2. ATENOLOL [Concomitant]
  3. LISINOPRIL [Concomitant]
     Route: 065
  4. MORPHINE SULFATE [Suspect]
  5. FISH OIL [Concomitant]
     Route: 065
  6. LIPITOR [Suspect]
     Dosage: UNK
  7. NEXIUM [Concomitant]
     Route: 065
  8. ERGOCALCIFEROL [Concomitant]
     Route: 065
  9. FOLIC ACID [Concomitant]
     Route: 065
  10. ACETYLSALICYLIC ACID [Concomitant]
     Route: 065
  11. CITRACAL [Concomitant]
     Route: 065
  12. SLOW-FE [Concomitant]
     Route: 065
  13. LEVOFLOXACIN [Suspect]
  14. FUROSEMIDE [Concomitant]
     Route: 065
  15. MULTI-VITAMINS [Concomitant]
     Route: 065

REACTIONS (11)
  - PANCYTOPENIA [None]
  - OEDEMA PERIPHERAL [None]
  - URTICARIA [None]
  - PALPITATIONS [None]
  - LARGE GRANULAR LYMPHOCYTOSIS [None]
  - DRUG HYPERSENSITIVITY [None]
  - PRURITUS [None]
  - UPPER RESPIRATORY TRACT INFECTION [None]
  - FLUID OVERLOAD [None]
  - HEART RATE DECREASED [None]
  - MYALGIA [None]
